FAERS Safety Report 24534323 (Version 1)
Quarter: 2024Q4

REPORT INFORMATION
  Report Type: Spontaneous
  Country: FR (occurrence: FR)
  Receive Date: 20241022
  Receipt Date: 20241022
  Transmission Date: 20250115
  Serious: No
  Sender: JAZZ
  Company Number: FR-JAZZ PHARMACEUTICALS-2024-FR-002008

PATIENT

DRUGS (1)
  1. SODIUM OXYBATE [Suspect]
     Active Substance: SODIUM OXYBATE
     Indication: Product used for unknown indication
     Dosage: DOSE: 4 GRAM, FREQUENCY: 2X/DAY (BID

REACTIONS (1)
  - Drug ineffective [Unknown]
